FAERS Safety Report 16353363 (Version 2)
Quarter: 2019Q2

REPORT INFORMATION
  Report Type: Spontaneous
  Country: US (occurrence: US)
  Receive Date: 20190524
  Receipt Date: 20190625
  Transmission Date: 20190711
  Serious: Yes (Other)
  Sender: FDA-Public Use
  Company Number: US-HIKMA PHARMACEUTICALS USA INC.-US-H14001-19-03395

PATIENT
  Age: 31 Year
  Sex: Female

DRUGS (2)
  1. MULTIVITAMINS [Concomitant]
     Active Substance: VITAMINS
     Indication: PRODUCT USED FOR UNKNOWN INDICATION
     Route: 048
  2. CALCIUM CARBONATE. [Suspect]
     Active Substance: CALCIUM CARBONATE
     Indication: GASTROOESOPHAGEAL REFLUX DISEASE
     Dosage: UNQUANTIFIABLE AMOUNT DUE TO CONSTANT CONSUMPTION ()
     Route: 048

REACTIONS (5)
  - Maternal exposure during pregnancy [Recovered/Resolved]
  - Pancreatitis [Recovered/Resolved]
  - Hypercalcaemia [Recovered/Resolved]
  - Metabolic acidosis [Unknown]
  - Intentional product misuse [Recovered/Resolved]
